FAERS Safety Report 6081036-4 (Version None)
Quarter: 2009Q1

REPORT INFORMATION
  Report Type: 
  Country: None (occurrence: None)
  Receive Date: 20090217
  Receipt Date: 20090209
  Transmission Date: 20090719
  Serious: Yes (Other)
  Sender: FDA-Public Use
  Company Number: PHEH2008US09611

PATIENT
  Sex: Male

DRUGS (13)
  1. ZOMETA [Suspect]
     Indication: MULTIPLE MYELOMA
     Dosage: 4 MG, QMO
     Dates: start: 20041028
  2. ZOMETA [Suspect]
     Dosage: 4 MG, Q3MO
     Dates: start: 20050922, end: 20060913
  3. ZOMETA [Suspect]
     Dosage: UNK
     Dates: end: 20080913
  4. THALIDOMIDE [Concomitant]
     Indication: MULTIPLE MYELOMA
     Dosage: 200 MG, QD
     Dates: start: 20041007, end: 20050322
  5. DEXAMETHASONE [Concomitant]
     Indication: MULTIPLE MYELOMA
     Dosage: 40 MG, QD X 4 REPEAT Q2WEEKS
     Dates: start: 20041007, end: 20041028
  6. DEXAMETHASONE [Concomitant]
     Dosage: 40 MG, QD X 4 Q2WEEKS
     Dates: start: 20041129, end: 20050224
  7. DEXAMETHASONE [Concomitant]
     Dosage: 40 MG, QD D1,D8,D15,D22
     Dates: start: 20080408, end: 20081106
  8. DEXAMETHASONE [Concomitant]
     Dosage: 20 MG, QW D1,D8,D15,D22
     Dates: start: 20081106
  9. REVLIMID [Concomitant]
     Indication: MULTIPLE MYELOMA
     Dosage: 25 MG, QD (DAY 1-21)
     Dates: start: 20080408
  10. CYTOXAN [Concomitant]
     Dosage: 3 G/M2, UNK
     Dates: start: 20050323, end: 20050824
  11. MELPHALAN [Concomitant]
     Dosage: 100 MG/M2, X 2 DAYS
     Dates: start: 20050419, end: 20050420
  12. RADIATION THERAPY [Concomitant]
     Dosage: UNK
     Dates: start: 20040930, end: 20041027
  13. RADIATION THERAPY [Concomitant]
     Dosage: UNK
     Dates: start: 20080327, end: 20080411

REACTIONS (3)
  - MOUTH ULCERATION [None]
  - OSTEONECROSIS [None]
  - STEM CELL TRANSPLANT [None]
